FAERS Safety Report 16136642 (Version 1)
Quarter: 2019Q1

REPORT INFORMATION
  Report Type: Spontaneous
  Country: NL (occurrence: NL)
  Receive Date: 20190329
  Receipt Date: 20190329
  Transmission Date: 20190418
  Serious: Yes (Other)
  Sender: FDA-Public Use
  Company Number: PHHY2019NL069381

PATIENT
  Sex: Male

DRUGS (1)
  1. LOSARTAN POTASSIUM SANDOZ [Suspect]
     Active Substance: LOSARTAN POTASSIUM
     Indication: PRODUCT USED FOR UNKNOWN INDICATION
     Dosage: UNK
     Route: 065

REACTIONS (6)
  - Blood pressure increased [Unknown]
  - Thrombosis [Unknown]
  - Nausea [Unknown]
  - Blindness unilateral [Recovered/Resolved]
  - Feeling abnormal [Unknown]
  - Vomiting [Unknown]
